FAERS Safety Report 4989084-X (Version None)
Quarter: 2006Q1

REPORT INFORMATION
  Report Type: 
  Country: None (occurrence: None)
  Receive Date: 20060314
  Receipt Date: 20051230
  Transmission Date: 20060701
  Serious: Yes (Other)
  Sender: FDA-Public Use
  Company Number: 200514324BCC

PATIENT
  Age: 35 Year
  Sex: Male
  Weight: 77.1115 kg

DRUGS (3)
  1. ALEVE (CAPLET) [Suspect]
     Indication: HEADACHE
     Dosage: ORAL
     Route: 048
     Dates: start: 20050918
  2. ALEVE (CAPLET) [Suspect]
     Dosage: ORAL
     Route: 048
     Dates: start: 20051026
  3. ALEVE (CAPLET) [Suspect]
     Dosage: 220 MG, QD, ORAL
     Route: 048
     Dates: start: 20051110

REACTIONS (7)
  - DIARRHOEA [None]
  - HEART RATE INCREASED [None]
  - HYPERHIDROSIS [None]
  - OCULAR HYPERAEMIA [None]
  - PRURITUS [None]
  - SYNCOPE [None]
  - TREMOR [None]
